FAERS Safety Report 5775938-3 (Version None)
Quarter: 2008Q2

REPORT INFORMATION
  Report Type: 
  Country: None (occurrence: None)
  Receive Date: 20080601
  Receipt Date: 20080109
  Transmission Date: 20081010
  Serious: No
  Sender: FDA-Public Use
  Company Number: 2006PV025551

PATIENT
  Age: 66 Year
  Sex: Female
  Weight: 74.8 kg

DRUGS (4)
  1. EXENATIDE(EXENATIDE) PEN,DISPOSABLE [Suspect]
     Indication: TYPE 2 DIABETES MELLITUS
     Dosage: 5 UG, 2/D, SUBCUTANEOUS ; 10 UG, 2/D, SUBCUTANEOUS
     Route: 058
     Dates: start: 20061110, end: 20071217
  2. EXENATIDE(EXENATIDE) PEN,DISPOSABLE [Suspect]
     Indication: TYPE 2 DIABETES MELLITUS
     Dosage: 5 UG, 2/D, SUBCUTANEOUS ; 10 UG, 2/D, SUBCUTANEOUS
     Route: 058
     Dates: start: 20071217
  3. EXENATIDE(EXENATIDE) PEN,DISPOSABLE [Suspect]
  4. GLUCOPHAGE [Concomitant]

REACTIONS (4)
  - CHILLS [None]
  - INJECTION SITE EXTRAVASATION [None]
  - INJECTION SITE HAEMORRHAGE [None]
  - SOMNOLENCE [None]
